FAERS Safety Report 7350642-9 (Version None)
Quarter: 2011Q1

REPORT INFORMATION
  Report Type: 
  Country: None (occurrence: None)
  Receive Date: 20110314
  Receipt Date: 20110304
  Transmission Date: 20110831
  Serious: Yes (Hospitalization)
  Sender: FDA-Public Use
  Company Number: JP-ASTRAZENECA-2011SE09054

PATIENT
  Age: 20900 Day
  Sex: Female
  Weight: 94 kg

DRUGS (3)
  1. FALITHROM [Concomitant]
     Indication: PULMONARY EMBOLISM
     Route: 048
     Dates: start: 19980101
  2. BLOPRESS FORTE [Suspect]
     Indication: ESSENTIAL HYPERTENSION
     Dosage: 32 MILLIGRAMS + 25 MILLIGRAMS, DAILY.
     Route: 048
     Dates: start: 20101021, end: 20110203
  3. L-THYROX [Concomitant]
     Route: 048

REACTIONS (2)
  - LARYNGEAL OEDEMA [None]
  - PHARYNGEAL OEDEMA [None]
